FAERS Safety Report 19157160 (Version 7)
Quarter: 2021Q2

REPORT INFORMATION
  Report Type: Report from Study
  Country: None (occurrence: IL)
  Receive Date: 20210420
  Receipt Date: 20210615
  Transmission Date: 20210717
  Serious: Yes (Death, Hospitalization, Other)
  Sender: FDA-Public Use
  Company Number: IL-ABBVIE-21K-082-3865538-00

PATIENT
  Sex: Female

DRUGS (3)
  1. DUODOPA [Suspect]
     Active Substance: CARBIDOPA\LEVODOPA
     Dosage: MD (ML) 10.0, CD (ML/H) 4.5, ED (ML) 3.0; REMAINS AT 16
     Route: 050
  2. DUODOPA [Suspect]
     Active Substance: CARBIDOPA\LEVODOPA
     Dosage: MD (ML) 15.0, CD (ML/H) 3.3, ED (ML) 1.5, REMAINS AT 16
     Route: 050
  3. DUODOPA [Suspect]
     Active Substance: CARBIDOPA\LEVODOPA
     Indication: PARKINSON^S DISEASE
     Route: 050
     Dates: start: 20191017

REACTIONS (10)
  - Communication disorder [Recovering/Resolving]
  - Bone neoplasm [Recovering/Resolving]
  - Pneumonia bacterial [Not Recovered/Not Resolved]
  - Cardiac valve rupture [Not Recovered/Not Resolved]
  - Meningitis bacterial [Not Recovered/Not Resolved]
  - Pneumonia [Not Recovered/Not Resolved]
  - Bacterial sepsis [Unknown]
  - Multiple organ dysfunction syndrome [Fatal]
  - Endocarditis bacterial [Not Recovered/Not Resolved]
  - General physical health deterioration [Not Recovered/Not Resolved]
